FAERS Safety Report 9906679 (Version 2)
Quarter: 2014Q1

REPORT INFORMATION
  Report Type: Spontaneous
  Country: US (occurrence: US)
  Receive Date: 20140218
  Receipt Date: 20140218
  Transmission Date: 20141002
  Serious: No
  Sender: FDA-Public Use
  Company Number: US-ASTRAZENECA-2013SE84949

PATIENT
  Age: 50 Year
  Sex: Female
  Weight: 54 kg

DRUGS (3)
  1. TENORMIN [Suspect]
     Indication: HYPERTENSION
     Route: 048
     Dates: start: 2003, end: 201312
  2. TENORMIN [Suspect]
     Indication: HYPERTENSION
     Route: 048
     Dates: start: 201312
  3. METOPROLOL [Suspect]
     Indication: HYPERTENSION
     Route: 065
     Dates: start: 1990

REACTIONS (13)
  - Flushing [Unknown]
  - Pruritus [Unknown]
  - Nail disorder [Unknown]
  - Pain in extremity [Not Recovered/Not Resolved]
  - Onychoclasis [Not Recovered/Not Resolved]
  - Tinnitus [Recovered/Resolved]
  - Erythema [Unknown]
  - Burning sensation [Unknown]
  - Asthenia [Recovered/Resolved]
  - Nausea [Recovered/Resolved]
  - Dermatitis [Unknown]
  - Rash [Not Recovered/Not Resolved]
  - Visual impairment [Unknown]
